FAERS Safety Report 5683993-4 (Version None)
Quarter: 2008Q1

REPORT INFORMATION
  Report Type: 
  Country: None (occurrence: None)
  Receive Date: 20080328
  Receipt Date: 20080320
  Transmission Date: 20080703
  Serious: Yes (Death)
  Sender: FDA-Public Use
  Company Number: US-ROCHE-551466

PATIENT
  Age: 52 Year
  Sex: Male
  Weight: 96.2 kg

DRUGS (1)
  1. TAMIFLU [Suspect]
     Indication: INFLUENZA
     Route: 065
     Dates: start: 20080303, end: 20080304

REACTIONS (2)
  - DEATH [None]
  - HALLUCINATION, AUDITORY [None]
